FAERS Safety Report 17795161 (Version 1)
Quarter: 2020Q2

REPORT INFORMATION
  Report Type: Spontaneous
  Country: US (occurrence: US)
  Receive Date: 20200515
  Receipt Date: 20200515
  Transmission Date: 20200714
  Serious: No
  Sender: FDA-Public Use
  Company Number: US-ELI_LILLY_AND_COMPANY-US202005005844

PATIENT
  Age: 40 Year
  Sex: Male

DRUGS (1)
  1. TALTZ [Suspect]
     Active Substance: IXEKIZUMAB
     Indication: PSORIASIS
     Dosage: 8 MG, MONTHLY (1/M)
     Route: 065

REACTIONS (2)
  - Diarrhoea [Not Recovered/Not Resolved]
  - Dyspnoea [Not Recovered/Not Resolved]

NARRATIVE: CASE EVENT DATE: 20200510
